FAERS Safety Report 18372690 (Version 2)
Quarter: 2020Q4

REPORT INFORMATION
  Report Type: Spontaneous
  Country: US (occurrence: US)
  Receive Date: 20201012
  Receipt Date: 20201102
  Transmission Date: 20210114
  Serious: No
  Sender: FDA-Public Use
  Company Number: US-PFIZER INC-2020391441

PATIENT
  Age: 56 Year
  Sex: Female
  Weight: 99.77 kg

DRUGS (1)
  1. IBRANCE [Suspect]
     Active Substance: PALBOCICLIB
     Indication: BREAST CANCER FEMALE
     Dosage: 125 MG, DAILY (1 DAILY FOR 21 DAYS)
     Route: 048
     Dates: start: 202008

REACTIONS (1)
  - Diarrhoea [Not Recovered/Not Resolved]
